FAERS Safety Report 6013437-4 (Version None)
Quarter: 2008Q4

REPORT INFORMATION
  Report Type: 
  Country: None (occurrence: None)
  Receive Date: 20081216
  Receipt Date: 20080122
  Transmission Date: 20090506
  Serious: Yes (Other)
  Sender: FDA-Public Use
  Company Number: US-WYE-H02256608

PATIENT
  Age: 39 Year
  Sex: Female
  Weight: 77.18 kg

DRUGS (3)
  1. EFFEXOR XR [Suspect]
     Indication: DEPRESSION
     Dosage: 150 MG 1X PER 1 DAY, ORAL ; 112.5 MG 1X PER 1 DAY, ORAL
     Route: 048
     Dates: start: 20010101
  2. ULTRAM [Concomitant]
  3. ESTROGENS SOL/INJ [Concomitant]

REACTIONS (1)
  - NARCOLEPSY [None]
